FAERS Safety Report 12179695 (Version 2)
Quarter: 2016Q2

REPORT INFORMATION
  Report Type: Spontaneous
  Country: US (occurrence: US)
  Receive Date: 20160315
  Receipt Date: 20160406
  Transmission Date: 20160815
  Serious: Yes (Hospitalization, Other)
  Sender: FDA-Public Use
  Company Number: US-WATSON-2016-05416

PATIENT
  Age: 58 Year
  Sex: Male

DRUGS (3)
  1. ARIPIPRAZOLE (UNKNOWN) [Suspect]
     Active Substance: ARIPIPRAZOLE
     Indication: PSYCHOTIC BEHAVIOUR
  2. DEXAMETHASONE (WATSON LABORATORIES) [Suspect]
     Active Substance: DEXAMETHASONE
     Indication: IMMUNE THROMBOCYTOPENIC PURPURA
     Dosage: 40 MG, CYCLICAL, 4 DAYS EVERY 3 WEEKS
     Route: 065
  3. ARIPIPRAZOLE (UNKNOWN) [Suspect]
     Active Substance: ARIPIPRAZOLE
     Indication: MANIA
     Dosage: RAPID INCREASE TO 20 MG, DAILY
     Route: 065

REACTIONS (3)
  - Mania [Recovering/Resolving]
  - Substance-induced psychotic disorder [Recovering/Resolving]
  - Dystonia [Unknown]
